FAERS Safety Report 20735849 (Version 1)
Quarter: 2022Q2

REPORT INFORMATION
  Report Type: Spontaneous
  Country: US (occurrence: US)
  Receive Date: 20220421
  Receipt Date: 20220421
  Transmission Date: 20220721
  Serious: Yes (Other)
  Sender: FDA-Public Use
  Company Number: US-TEVA-2022-US-2028240

PATIENT
  Age: 66 Year
  Sex: Male
  Weight: 103 kg

DRUGS (3)
  1. WARFARIN [Suspect]
     Active Substance: WARFARIN
     Indication: Anticoagulant therapy
     Route: 065
  2. ASPIRIN [Suspect]
     Active Substance: ASPIRIN
     Indication: Anticoagulant therapy
     Dosage: INITIAL DOSE NOT STATED; LATER RECEIVED DOSE OF 81 MG
     Route: 065
  3. ENOXAPARIN SODIUM [Suspect]
     Active Substance: ENOXAPARIN SODIUM
     Indication: International normalised ratio abnormal
     Route: 065

REACTIONS (2)
  - Haematoma muscle [Unknown]
  - Haemoglobin decreased [Unknown]
